FAERS Safety Report 12601900 (Version 1)
Quarter: 2016Q3

REPORT INFORMATION
  Report Type: Report from Study
  Country: CA (occurrence: CA)
  Receive Date: 20160728
  Receipt Date: 20160728
  Transmission Date: 20161109
  Serious: Yes (Hospitalization, Other)
  Sender: FDA-Public Use
  Company Number: CA-JNJFOC-20160621377

PATIENT
  Age: 55 Year
  Sex: Male
  Weight: 78.4 kg

DRUGS (15)
  1. CARBOCAL D [Concomitant]
     Active Substance: CALCIUM\VITAMIN D
     Route: 065
  2. MESALAZINE [Concomitant]
     Active Substance: MESALAMINE
     Dosage: 3 TABLETS TWICE A DAY
     Route: 065
  3. REMICADE [Suspect]
     Active Substance: INFLIXIMAB
     Indication: COLITIS ULCERATIVE
     Route: 042
     Dates: start: 20160721
  4. PURINETHOL [Concomitant]
     Active Substance: MERCAPTOPURINE
     Dosage: 1 AND HALF TABLET
     Route: 065
  5. APO ESOMEPRAZOLE [Concomitant]
     Active Substance: ESOMEPRAZOLE MAGNESIUM
     Dosage: LONG ACTING TABLET
     Route: 065
  6. PMS ROSUVASTATIN [Concomitant]
     Route: 065
  7. REMICADE [Suspect]
     Active Substance: INFLIXIMAB
     Indication: COLITIS ULCERATIVE
     Route: 042
     Dates: start: 20160609
  8. REMICADE [Suspect]
     Active Substance: INFLIXIMAB
     Indication: COLITIS ULCERATIVE
     Route: 042
     Dates: start: 20160623
  9. SYNTHROID [Concomitant]
     Active Substance: LEVOTHYROXINE SODIUM
     Route: 065
  10. CREON [Concomitant]
     Active Substance: PANCRELIPASE AMYLASE\PANCRELIPASE LIPASE\PANCRELIPASE PROTEASE
     Route: 065
  11. TYLENOL [Concomitant]
     Active Substance: ACETAMINOPHEN
     Dosage: ONCE EVERY 4-6 HOURS
     Route: 065
  12. PREDNISONE. [Concomitant]
     Active Substance: PREDNISONE
     Route: 065
  13. APO MONTELUKAST [Concomitant]
     Route: 065
  14. IRON [Concomitant]
     Active Substance: IRON
     Route: 065
  15. SEREVENT DISKUS [Concomitant]
     Active Substance: SALMETEROL XINAFOATE
     Dosage: TWICE DAILY
     Route: 065

REACTIONS (4)
  - Proctalgia [Not Recovered/Not Resolved]
  - General physical health deterioration [Unknown]
  - Colitis ulcerative [Unknown]
  - Lung infection [Unknown]

NARRATIVE: CASE EVENT DATE: 20160622
